FAERS Safety Report 11721439 (Version 1)
Quarter: 2015Q4

REPORT INFORMATION
  Report Type: Report from Study
  Country: US (occurrence: None)
  Receive Date: 20151109
  Receipt Date: 20151109
  Transmission Date: 20160304
  Serious: Yes (Hospitalization, Other)
  Sender: FDA-Public Use
  Company Number: 2015PL000071

PATIENT
  Age: 62 Year
  Sex: Female
  Weight: 85.6 kg

DRUGS (8)
  1. VENTOLIN /00139501/ (SALBUTAMOL) [Concomitant]
  2. PROLEUKIN [Suspect]
     Active Substance: ALDESLEUKIN
     Indication: METASTATIC MALIGNANT MELANOMA
     Route: 042
     Dates: start: 20150112, end: 20150116
  3. IPILIMUMAB (IPILIMUMAB) SOLUTION FOR INJECTION [Suspect]
     Active Substance: IPILIMUMAB
     Indication: METASTATIC MALIGNANT MELANOMA
     Route: 042
     Dates: start: 20150225, end: 20150225
  4. LOMOTIL /00034001/ (ATROPINE SULFATE, DIPHENOXYLATE HYDROCHLORIDE) [Concomitant]
  5. FLONASE [Concomitant]
     Active Substance: FLUTICASONE PROPIONATE
  6. IMODIUM [Concomitant]
     Active Substance: LOPERAMIDE HYDROCHLORIDE
  7. MULTIVITAMIN AND MINERAL SUPPLEMENT [Concomitant]
     Active Substance: MINERALS\VITAMINS
  8. VITAMIN E /00110501/ (TOCOPHEROL) [Concomitant]

REACTIONS (5)
  - Fall [None]
  - Abdominal pain [None]
  - Diarrhoea [None]
  - Encephalitis autoimmune [None]
  - Retching [None]

NARRATIVE: CASE EVENT DATE: 20150429
